FAERS Safety Report 21504401 (Version 1)
Quarter: 2022Q4

REPORT INFORMATION
  Report Type: Spontaneous
  Country: DE (occurrence: DE)
  Receive Date: 20221025
  Receipt Date: 20221025
  Transmission Date: 20230112
  Serious: Yes (Other)
  Sender: FDA-Public Use
  Company Number: DE-ROCHE-3200605

PATIENT
  Age: 49 Year
  Sex: Female

DRUGS (4)
  1. TRASTUZUMAB [Suspect]
     Active Substance: TRASTUZUMAB
     Indication: Breast cancer metastatic
     Dosage: UNK (IN COMBINATION WITH PERJETA AND CHEMOTHERAPY NOS)
     Route: 040
     Dates: start: 2019
  2. TRASTUZUMAB [Suspect]
     Active Substance: TRASTUZUMAB
     Dosage: UNK (IN COMBINATION WITH PERJETA)
     Route: 040
  3. PERJETA [Suspect]
     Active Substance: PERTUZUMAB
     Indication: Breast cancer metastatic
     Dosage: UNK (IN COMBINATION WITH TRASTUZUMAB)
     Route: 040
  4. PERJETA [Suspect]
     Active Substance: PERTUZUMAB
     Dosage: UNK (IN COMBINATION WITH TRASTUZUMAB AND CHEMOTHERAPY NOS)
     Dates: start: 2019

REACTIONS (4)
  - Polyneuropathy [Not Recovered/Not Resolved]
  - Cardiac failure [Not Recovered/Not Resolved]
  - Renal failure [Not Recovered/Not Resolved]
  - Off label use [Unknown]
